FAERS Safety Report 4985316-2 (Version None)
Quarter: 2006Q2

REPORT INFORMATION
  Report Type: 
  Country: None (occurrence: None)
  Receive Date: 20060427
  Receipt Date: 20050812
  Transmission Date: 20061013
  Serious: Yes (Death, Hospitalization)
  Sender: FDA-Public Use
  Company Number: NO-MERCK-0508NOR00010

PATIENT
  Age: 48 Year
  Sex: Female

DRUGS (4)
  1. VIOXX [Suspect]
     Indication: PAIN
     Route: 065
     Dates: start: 20030701, end: 20030801
  2. VIOXX [Suspect]
     Route: 065
     Dates: start: 20030925, end: 20031001
  3. VIOXX [Suspect]
     Route: 065
     Dates: start: 20031101, end: 20031101
  4. VIOXX [Suspect]
     Route: 065
     Dates: start: 20031229

REACTIONS (5)
  - ARTERIOSCLEROSIS CORONARY ARTERY [None]
  - CHEST PAIN [None]
  - DEPRESSION [None]
  - MYOCARDIAL INFARCTION [None]
  - WEIGHT INCREASED [None]
